FAERS Safety Report 9199234 (Version 1)
Quarter: 2013Q1

REPORT INFORMATION
  Report Type: Spontaneous
  Country: US (occurrence: US)
  Receive Date: 20130329
  Receipt Date: 20130329
  Transmission Date: 20140127
  Serious: No
  Sender: FDA-Public Use
  Company Number: US-PFIZER INC-2013100473

PATIENT
  Age: 53 Year
  Sex: Female
  Weight: 87.98 kg

DRUGS (3)
  1. LYRICA [Suspect]
     Indication: FIBROMYALGIA
     Dosage: UNK (50MG OR 75MG)
  2. LYRICA [Suspect]
     Dosage: 100 MG, 3X/DAY
     Dates: end: 201301
  3. LYRICA [Suspect]
     Dosage: 100 MG, 3X/DAY
     Dates: start: 201301

REACTIONS (6)
  - Hypersensitivity [Recovered/Resolved]
  - Panic reaction [Recovered/Resolved]
  - Pruritus [Not Recovered/Not Resolved]
  - Vision blurred [Recovered/Resolved]
  - Disturbance in attention [Recovered/Resolved]
  - Sleep disorder [Recovered/Resolved]
